FAERS Safety Report 7324923-9 (Version None)
Quarter: 2011Q1

REPORT INFORMATION
  Report Type: 
  Country: None (occurrence: None)
  Receive Date: 20110301
  Receipt Date: 20110217
  Transmission Date: 20110831
  Serious: Yes (Hospitalization, Other)
  Sender: FDA-Public Use
  Company Number: BR-GENENTECH-309749

PATIENT
  Sex: Female
  Weight: 67 kg

DRUGS (10)
  1. ULTRACET [Suspect]
     Indication: PAIN
     Dosage: UNK
     Route: 065
  2. LISADOR [Concomitant]
     Indication: PRODUCT USED FOR UNKNOWN INDICATION
  3. RITUXIMAB [Suspect]
     Indication: RHEUMATOID ARTHRITIS
     Dosage: 1000 MG, UNK
     Route: 042
     Dates: start: 20101018, end: 20101018
  4. ACETAMINOPHEN [Concomitant]
     Indication: PRODUCT USED FOR UNKNOWN INDICATION
  5. PURAN T4 [Concomitant]
     Indication: THYROIDECTOMY
     Dosage: 112 A?G, UNK
     Dates: start: 20030101
  6. NEXIUM [Concomitant]
     Indication: PRODUCT USED FOR UNKNOWN INDICATION
     Dosage: UNK
  7. CALCIUM CARBONATE [Concomitant]
     Indication: PRODUCT USED FOR UNKNOWN INDICATION
  8. SERTRALINE [Concomitant]
     Indication: DEPRESSION
     Dosage: 150 MG, UNK
  9. AMITRIPTYLINE HYDROCHLORIDE [Suspect]
     Indication: PRODUCT USED FOR UNKNOWN INDICATION
     Route: 065
  10. OMEPRAZOLE [Concomitant]
     Indication: PRODUCT USED FOR UNKNOWN INDICATION

REACTIONS (10)
  - ASTHENIA [None]
  - DEPRESSION [None]
  - CONSTIPATION [None]
  - RHEUMATOID ARTHRITIS [None]
  - PNEUMONIA [None]
  - MALAISE [None]
  - SPINAL FRACTURE [None]
  - VOMITING [None]
  - WEIGHT DECREASED [None]
  - DRY MOUTH [None]
